FAERS Safety Report 4870699-4 (Version None)
Quarter: 2006Q1

REPORT INFORMATION
  Report Type: 
  Country: None (occurrence: None)
  Receive Date: 20060103
  Receipt Date: 20051214
  Transmission Date: 20060701
  Serious: Yes (Other)
  Sender: FDA-Public Use
  Company Number: JP-JPN-A20053070

PATIENT
  Age: 64 Year
  Sex: Female

DRUGS (7)
  1. PAXIL [Suspect]
     Route: 048
  2. RISPERIDONE [Suspect]
     Dosage: 2MG PER DAY
     Route: 048
  3. LORAZEPAM [Concomitant]
     Route: 048
  4. ZOLPIDEM TARTRATE [Concomitant]
     Dosage: 10MG PER DAY
     Route: 048
  5. AMLODIPINE BESYLATE [Concomitant]
     Dosage: 30MG PER DAY
     Route: 048
  6. GLIMEPIRIDE [Concomitant]
     Route: 048
  7. METFORMIN HYDROCHLORIDE [Concomitant]
     Route: 048

REACTIONS (3)
  - DRUG INTERACTION [None]
  - EXTRAPYRAMIDAL DISORDER [None]
  - SOMNOLENCE [None]
